FAERS Safety Report 6316770-1 (Version None)
Quarter: 2009Q3

REPORT INFORMATION
  Report Type: 
  Country: None (occurrence: None)
  Receive Date: 20090820
  Receipt Date: 20090811
  Transmission Date: 20100115
  Serious: Yes (Hospitalization)
  Sender: FDA-Public Use
  Company Number: JP-JNJFOC-20090804563

PATIENT
  Age: 41 Year
  Sex: Female

DRUGS (4)
  1. ACETAMINOPHEN [Suspect]
  2. ACETAMINOPHEN [Suspect]
     Indication: NASOPHARYNGITIS
  3. EVE A [Suspect]
     Indication: PYREXIA
  4. CEFCAPENE [Suspect]
     Indication: DRUG USE FOR UNKNOWN INDICATION

REACTIONS (1)
  - EOSINOPHILIC PNEUMONIA [None]
